FAERS Safety Report 8949378 (Version 1)
Quarter: 2012Q4

REPORT INFORMATION
  Report Type: 
  Country: TR (occurrence: TR)
  Receive Date: 20121206
  Receipt Date: 20121206
  Transmission Date: 20130627
  Serious: Yes (Death, Other)
  Sender: FDA-Public Use
  Company Number: PHHY2012TR112181

PATIENT

DRUGS (3)
  1. HALOPERIDOL [Suspect]
     Indication: DELIRIUM
     Dosage: 1 mg, TID
  2. HALOPERIDOL [Suspect]
     Indication: AGITATION
  3. HALOPERIDOL [Suspect]
     Indication: DISORIENTATION

REACTIONS (2)
  - Cardiac arrest [Fatal]
  - Myoclonus [Recovered/Resolved]
